FAERS Safety Report 24679884 (Version 3)
Quarter: 2025Q3

REPORT INFORMATION
  Report Type: Spontaneous
  Country: JP (occurrence: JP)
  Receive Date: 20241129
  Receipt Date: 20250722
  Transmission Date: 20251021
  Serious: Yes (Hospitalization, Other)
  Sender: ALEXION PHARMACEUTICALS
  Company Number: JP-ASTRAZENECA-240132926_010520_P_1

PATIENT
  Age: 75 Year
  Sex: Female
  Weight: 45 kg

DRUGS (11)
  1. TRUQAP [Suspect]
     Active Substance: CAPIVASERTIB
     Indication: Breast cancer
     Dosage: 4 CONSECUTIVE DAYS ADMINISTRATION, FOLLOWED BY  3 DAYS OFF
     Dates: start: 20241102, end: 20241111
  2. FASLODEX [Suspect]
     Active Substance: FULVESTRANT
     Indication: Breast cancer
  3. FASLODEX [Suspect]
     Active Substance: FULVESTRANT
  4. CALCIUM CARBONATE\CHOLECALCIFEROL\MAGNESIUM CARBONATE [Concomitant]
     Active Substance: CALCIUM CARBONATE\CHOLECALCIFEROL\MAGNESIUM CARBONATE
  5. SULPIRIDE [Concomitant]
     Active Substance: SULPIRIDE
     Route: 065
  6. CILNIDIPINE [Concomitant]
     Active Substance: CILNIDIPINE
  7. ELIQUIS [Concomitant]
     Active Substance: APIXABAN
  8. IRSOGLADINE MALEATE [Concomitant]
     Active Substance: IRSOGLADINE MALEATE
  9. ATENOLOL [Concomitant]
     Active Substance: ATENOLOL
  10. Vitaneurin [Concomitant]
     Route: 065
  11. URSODIOL [Concomitant]
     Active Substance: URSODIOL

REACTIONS (5)
  - Hyperglycaemia [Recovered/Resolved]
  - Urinary tract infection [Recovered/Resolved]
  - Gastric ulcer [Recovering/Resolving]
  - Rash erythematous [Recovered/Resolved]
  - Cardiac failure [Recovered/Resolved]
